FAERS Safety Report 6668256-2 (Version None)
Quarter: 2010Q2

REPORT INFORMATION
  Report Type: 
  Country: None (occurrence: None)
  Receive Date: 20100406
  Receipt Date: 20100324
  Transmission Date: 20101027
  Serious: Yes (Hospitalization, Other)
  Sender: FDA-Public Use
  Company Number: IT-ABBOTT-10P-083-0634308-00

PATIENT
  Sex: Male

DRUGS (5)
  1. AKINETON [Suspect]
     Indication: INTENTIONAL SELF-INJURY
     Route: 048
     Dates: start: 20100205, end: 20100205
  2. EN [Suspect]
     Indication: INTENTIONAL SELF-INJURY
     Route: 048
     Dates: start: 20100205, end: 20100205
  3. ENTACT FILM-COATED TABLETS [Suspect]
     Indication: INTENTIONAL SELF-INJURY
     Route: 048
     Dates: start: 20100205, end: 20100205
  4. CARBOLITHIUM [Suspect]
     Indication: INTENTIONAL SELF-INJURY
     Route: 048
     Dates: start: 20100205, end: 20100205
  5. RISPERDAL [Concomitant]
     Indication: DRUG USE FOR UNKNOWN INDICATION
     Dates: start: 20100104

REACTIONS (5)
  - AGITATION [None]
  - ELECTROCARDIOGRAM REPOLARISATION ABNORMALITY [None]
  - MULTIPLE DRUG OVERDOSE INTENTIONAL [None]
  - OVERDOSE [None]
  - SINUS BRADYCARDIA [None]
